FAERS Safety Report 12365675 (Version 1)
Quarter: 2016Q2

REPORT INFORMATION
  Report Type: Spontaneous
  Country: CN (occurrence: CN)
  Receive Date: 20160513
  Receipt Date: 20160513
  Transmission Date: 20160815
  Serious: Yes (Other)
  Sender: FDA-Public Use
  Company Number: CN-GLAXOSMITHKLINE-CN2016GSK058752

PATIENT
  Age: 62 Year
  Sex: Male
  Weight: 110 kg

DRUGS (3)
  1. AVANDIA [Suspect]
     Active Substance: ROSIGLITAZONE MALEATE
     Indication: GLUCOSE TOLERANCE DECREASED
     Dosage: 4 MG, QD
     Route: 048
     Dates: start: 2006
  2. GLUCOPHAGE [Suspect]
     Active Substance: METFORMIN HYDROCHLORIDE
     Indication: GLUCOSE TOLERANCE DECREASED
     Dosage: 1 TABLET, BID
     Dates: start: 201602, end: 201604
  3. GLUCOBAY [Suspect]
     Active Substance: ACARBOSE
     Indication: GLUCOSE TOLERANCE DECREASED
     Dosage: UNK

REACTIONS (5)
  - Weight increased [Not Recovered/Not Resolved]
  - Product use issue [Unknown]
  - Blood glucose increased [Not Recovered/Not Resolved]
  - Myocardial ischaemia [Unknown]
  - Chest pain [Unknown]

NARRATIVE: CASE EVENT DATE: 2006
